FAERS Safety Report 21178706 (Version 1)
Quarter: 2022Q3

REPORT INFORMATION
  Report Type: Spontaneous
  Country: CO (occurrence: CO)
  Receive Date: 20220805
  Receipt Date: 20220805
  Transmission Date: 20221026
  Serious: Yes (Other)
  Sender: FDA-Public Use
  Company Number: CO-AMGEN-COLSP2022130076

PATIENT
  Age: 69 Year
  Sex: Female
  Weight: 67 kg

DRUGS (7)
  1. MVASI [Suspect]
     Active Substance: BEVACIZUMAB-AWWB
     Indication: Adenocarcinoma of colon
     Dosage: 335 MILLIGRAM
     Route: 042
     Dates: start: 20220609
  2. MVASI [Suspect]
     Active Substance: BEVACIZUMAB-AWWB
     Indication: K-ras gene mutation
  3. NEULASTA [Suspect]
     Active Substance: PEGFILGRASTIM
     Indication: Adenocarcinoma of colon
     Dosage: 6 MILLIGRAM
     Route: 058
     Dates: start: 20220609
  4. LEUCOVORIN CALCIUM [Concomitant]
     Active Substance: LEUCOVORIN CALCIUM
     Indication: Adenocarcinoma of colon
     Dosage: 708 MILLIGRAM
     Route: 042
     Dates: start: 20220609
  5. FLUOROURACIL [Concomitant]
     Active Substance: FLUOROURACIL
     Indication: Adenocarcinoma of colon
     Dosage: 708 MILLIGRAM
     Route: 042
     Dates: start: 20220609
  6. FOSAPREPITANT [Concomitant]
     Active Substance: FOSAPREPITANT
     Indication: Adenocarcinoma of colon
     Dosage: 150 MILLIGRAM
     Route: 042
     Dates: start: 20220609
  7. OXALIPLATIN [Concomitant]
     Active Substance: OXALIPLATIN
     Indication: Adenocarcinoma of colon
     Dosage: 150.45 MILLIGRAM
     Route: 042
     Dates: start: 20220609

REACTIONS (3)
  - Neuropathy peripheral [Not Recovered/Not Resolved]
  - Nausea [Recovering/Resolving]
  - Vomiting [Recovering/Resolving]

NARRATIVE: CASE EVENT DATE: 20220628
